FAERS Safety Report 18682186 (Version 5)
Quarter: 2022Q4

REPORT INFORMATION
  Report Type: Report from Study
  Country: CA (occurrence: CA)
  Receive Date: 20201229
  Receipt Date: 20221121
  Transmission Date: 20230113
  Serious: Yes (Hospitalization)
  Sender: FDA-Public Use
  Company Number: CA-JNJFOC-20201246337

PATIENT
  Age: 43 Year
  Sex: Male
  Weight: 88 kg

DRUGS (2)
  1. STELARA [Suspect]
     Active Substance: USTEKINUMAB
     Indication: Crohn^s disease
     Dosage: RESUMPTION OF TREATMENT AFTER 18 MONTHS. EXPIRATION DATE 31-MAR-2025
     Route: 058
     Dates: start: 20190425, end: 20201103
  2. STELARA [Suspect]
     Active Substance: USTEKINUMAB

REACTIONS (4)
  - Brain neoplasm [Recovering/Resolving]
  - Osteitis [Unknown]
  - Post procedural infection [Unknown]
  - COVID-19 [Recovering/Resolving]

NARRATIVE: CASE EVENT DATE: 20221112
